FAERS Safety Report 8443472 (Version 3)
Quarter: 2014Q1

REPORT INFORMATION
  Report Type: Spontaneous
  Country: US (occurrence: US)
  Receive Date: 20120306
  Receipt Date: 20140108
  Transmission Date: 20141002
  Serious: Yes (Hospitalization, Other)
  Sender: FDA-Public Use
  Company Number: US-BAYER-2012-019846

PATIENT
  Age: 18 Year
  Sex: Female
  Weight: 46.26 kg

DRUGS (11)
  1. YASMIN [Suspect]
     Indication: OVARIAN CYST
     Dosage: UNK
     Route: 048
     Dates: start: 2006, end: 200808
  2. YASMIN [Suspect]
     Indication: PREMENSTRUAL SYNDROME
  3. OCELLA [Suspect]
     Indication: OVARIAN CYST
     Dosage: UNK
     Route: 048
     Dates: start: 20080828, end: 200911
  4. OCELLA [Suspect]
     Indication: PREMENSTRUAL SYNDROME
  5. PROVENTIL [Concomitant]
     Dosage: 1-2 PUFFS EVERY 4-6 HOURS AS NEEDED
     Route: 045
  6. PREDNISONE [Concomitant]
     Dosage: 10 MG,  AS DIRECTED
     Route: 048
  7. HYOSCYAMINE [Concomitant]
     Dosage: 0.125 MG, Q4HR AS NEEDED
     Route: 060
  8. PANTOPRAZOLE [Concomitant]
     Dosage: 40 MG, QD
     Route: 048
  9. PROAIR HFA [Concomitant]
     Dosage: 1 PUFF, PRN
     Route: 045
  10. TYLENOL WITH CODEINE [Concomitant]
     Indication: ABDOMINAL PAIN
  11. TAMIFLU [Concomitant]
     Dosage: 75 MG, UNK
     Dates: start: 20091020

REACTIONS (6)
  - Cholecystectomy [None]
  - Biliary dyskinesia [Recovered/Resolved]
  - Cholecystitis [None]
  - Pain [None]
  - Injury [None]
  - Off label use [None]
